FAERS Safety Report 6184662-7 (Version None)
Quarter: 2009Q2

REPORT INFORMATION
  Report Type: 
  Country: None (occurrence: None)
  Receive Date: 20090508
  Receipt Date: 20090506
  Transmission Date: 20091009
  Serious: Yes (Hospitalization)
  Sender: FDA-Public Use
  Company Number: US-BRISTOL-MYERS SQUIBB COMPANY-14613475

PATIENT
  Age: 66 Year
  Sex: Female
  Weight: 75 kg

DRUGS (8)
  1. ORENCIA [Suspect]
     Indication: RHEUMATOID ARTHRITIS
     Dates: start: 20030101
  2. METHOTREXATE [Suspect]
  3. COZAAR [Concomitant]
     Dosage: 1DF=1 TAB
     Dates: start: 20040101
  4. SYNTHROID [Concomitant]
  5. ARTHROTEC [Concomitant]
     Dosage: 1DF=75/0.2MG. COUPLE OF YEARS AGO
  6. ZETIA [Concomitant]
     Dosage: 6 WEEKS AGO
  7. LOVAZA [Concomitant]
     Dosage: 2 DF=2 CAPSULES
  8. VITAMIN B-12 [Concomitant]

REACTIONS (6)
  - HYPOAESTHESIA [None]
  - OROPHARYNGEAL BLISTERING [None]
  - RASH [None]
  - SWELLING FACE [None]
  - SWOLLEN TONGUE [None]
  - TREMOR [None]
